FAERS Safety Report 4639018-2 (Version None)
Quarter: 2005Q2

REPORT INFORMATION
  Report Type: 
  Country: None (occurrence: None)
  Receive Date: 20050415
  Receipt Date: 20050415
  Transmission Date: 20051028
  Serious: No
  Sender: FDA-Public Use
  Company Number: None

PATIENT
  Age: 3 Year
  Sex: Female
  Weight: 77.1115 kg

DRUGS (1)
  1. SYNTHROID [Suspect]
     Indication: THYROIDITIS
     Dosage: DAILY BY MOUTH
     Route: 048
     Dates: start: 20030101

REACTIONS (2)
  - PHARMACEUTICAL PRODUCT COMPLAINT [None]
  - THYROID DISORDER [None]
